FAERS Safety Report 8183565-6 (Version None)
Quarter: 2012Q1

REPORT INFORMATION
  Report Type: 
  Country: None (occurrence: None)
  Receive Date: 20120305
  Receipt Date: 20120224
  Transmission Date: 20120608
  Serious: Yes (Hospitalization)
  Sender: FDA-Public Use
  Company Number: PT-JNJFOC-20110911176

PATIENT
  Age: 32 Year
  Sex: Male

DRUGS (3)
  1. GOLIMUMAB [Suspect]
     Indication: ARTHRITIS
     Route: 058
     Dates: start: 20101201
  2. METHOTREXATE [Concomitant]
     Indication: ARTHRITIS
  3. SULFASALAZINE [Concomitant]
     Indication: ARTHRITIS

REACTIONS (4)
  - ANAEMIA [None]
  - GLIOMA [None]
  - OFF LABEL USE [None]
  - DRUG INEFFECTIVE [None]
